FAERS Safety Report 4295701-2 (Version None)
Quarter: 2004Q1

REPORT INFORMATION
  Report Type: 
  Country: None (occurrence: None)
  Receive Date: 20040216
  Receipt Date: 20040213
  Transmission Date: 20041129
  Serious: Yes (Other)
  Sender: FDA-Public Use
  Company Number: US-GLAXOSMITHKLINE-A0498160A

PATIENT
  Age: 72 Year
  Sex: Male

DRUGS (3)
  1. ADVAIR DISKUS 100/50 [Suspect]
     Indication: ASTHMA
     Dosage: 1PUFF PER DAY
     Route: 055
     Dates: end: 20040201
  2. LIPITOR [Concomitant]
  3. MULTIVITAMIN [Concomitant]

REACTIONS (5)
  - EROSIVE OESOPHAGITIS [None]
  - HAEMATEMESIS [None]
  - HAEMORRHAGE [None]
  - OESOPHAGEAL INJURY [None]
  - VOMITING [None]
